FAERS Safety Report 4653181-9 (Version None)
Quarter: 2005Q2

REPORT INFORMATION
  Report Type: 
  Country: None (occurrence: None)
  Receive Date: 20050505
  Receipt Date: 20050408
  Transmission Date: 20051028
  Serious: Yes (Hospitalization)
  Sender: FDA-Public Use
  Company Number: 200512903US

PATIENT
  Sex: Female

DRUGS (11)
  1. ARAVA [Suspect]
     Indication: RHEUMATOID ARTHRITIS
     Dates: start: 20041210, end: 20050115
  2. VITAMIN C [Concomitant]
     Dosage: DOSE: UNKNOWN
  3. VITAMIN E [Concomitant]
     Dosage: DOSE: UNKNOWN
  4. MULTIVITAMINS, PLAIN [Concomitant]
     Dosage: DOSE: UNKNOWN
  5. SYNTHROID [Concomitant]
     Dosage: DOSE: UNKNOWN
  6. LUVOX [Concomitant]
     Dosage: DOSE: UNKNOWN
  7. AVAPRO [Concomitant]
     Dosage: DOSE: UNKNOWN
  8. BUSPAR [Concomitant]
     Dosage: DOSE: UNKNOWN
  9. NORVASC [Concomitant]
     Dosage: DOSE: UNKNOWN
  10. PLAVIX [Concomitant]
     Dosage: DOSE: UNKNOWN
  11. ACTONEL [Concomitant]
     Dosage: DOSE: UNKNOWN

REACTIONS (4)
  - DIARRHOEA [None]
  - ELECTROLYTE IMBALANCE [None]
  - GASTROENTERITIS [None]
  - VOMITING [None]
